FAERS Safety Report 8819444 (Version 1)
Quarter: 2012Q4

REPORT INFORMATION
  Report Type: 
  Country: IT (occurrence: IT)
  Receive Date: 20121001
  Receipt Date: 20121001
  Transmission Date: 20130627
  Serious: Yes (Death, Other)
  Sender: FDA-Public Use
  Company Number: IT-GE HEALTHCARE MEDICAL DIAGNOSTICS-OMPQ-NO-1209S-0942

PATIENT
  Age: 80 Year
  Sex: Male

DRUGS (1)
  1. OMNIPAQUE [Suspect]
     Indication: SQUAMOUS CELL CARCINOMA
     Route: 042
     Dates: start: 20120718, end: 20120718

REACTIONS (4)
  - Epistaxis [Unknown]
  - Anaphylactic shock [Fatal]
  - Cardio-respiratory arrest [Fatal]
  - Angioedema [Fatal]
